FAERS Safety Report 4386484-6 (Version None)
Quarter: 2004Q2

REPORT INFORMATION
  Report Type: 
  Country: None (occurrence: None)
  Receive Date: 20040629
  Receipt Date: 20040624
  Transmission Date: 20050107
  Serious: Yes (Hospitalization, Other)
  Sender: FDA-Public Use
  Company Number: IT-BRISTOL-MYERS SQUIBB COMPANY-12624169

PATIENT
  Age: 60 Year
  Sex: Male

DRUGS (3)
  1. CISPLATIN [Suspect]
     Indication: LUNG SQUAMOUS CELL CARCINOMA STAGE III
     Dates: start: 20020101, end: 20020101
  2. VINORELBINE TARTRATE [Suspect]
     Indication: LUNG SQUAMOUS CELL CARCINOMA STAGE III
     Dates: start: 20020101, end: 20020101
  3. DEXAMETHASONE [Suspect]
     Indication: OEDEMA
     Dosage: 8MG X2/DAY FOR 7 DAYS 4 MG X2/DAY FOR 5 DAYS @ CHEMO AS ANTIEMETIC
     Dates: start: 20020101, end: 20020101

REACTIONS (3)
  - PERITONEAL HAEMORRHAGE [None]
  - SPLENIC RUPTURE [None]
  - WHITE BLOOD CELL COUNT INCREASED [None]
